FAERS Safety Report 21691534 (Version 1)
Quarter: 2022Q4

REPORT INFORMATION
  Report Type: Spontaneous
  Country: US (occurrence: US)
  Receive Date: 20221207
  Receipt Date: 20221207
  Transmission Date: 20230113
  Serious: No
  Sender: FDA-Public Use
  Company Number: US-TAKEDA-2022TUS089442

PATIENT
  Age: 7 Year
  Sex: Male

DRUGS (3)
  1. ENTYVIO [Suspect]
     Active Substance: VEDOLIZUMAB
     Indication: Colitis ulcerative
     Dosage: 10 MILLIGRAM/KILOGRAM
     Route: 042
     Dates: start: 20191121
  2. ENTYVIO [Suspect]
     Active Substance: VEDOLIZUMAB
     Dosage: 10 MILLIGRAM/KILOGRAM, Q6WEEKS
     Route: 042
  3. METHOTREXATE [Concomitant]
     Active Substance: METHOTREXATE
     Dosage: 7.5 MILLIGRAM, 1/WEEK
     Route: 048

REACTIONS (2)
  - General symptom [Unknown]
  - Off label use [Unknown]

NARRATIVE: CASE EVENT DATE: 20191121
